FAERS Safety Report 5716906-7 (Version None)
Quarter: 2008Q2

REPORT INFORMATION
  Report Type: 
  Country: None (occurrence: None)
  Receive Date: 20080424
  Receipt Date: 20080328
  Transmission Date: 20081010
  Serious: No
  Sender: FDA-Public Use
  Company Number: US-BOEHRINGER INGELHEIM GMBH, GERMANY-2008-BP-04873BP

PATIENT
  Sex: Female

DRUGS (2)
  1. SPIRIVA [Suspect]
     Dates: start: 20080301
  2. COMBIVENT [Concomitant]

REACTIONS (4)
  - ADVERSE DRUG REACTION [None]
  - ANXIETY [None]
  - DRY THROAT [None]
  - VISION BLURRED [None]
